FAERS Safety Report 20516495 (Version 30)
Quarter: 2024Q3

REPORT INFORMATION
  Report Type: Spontaneous
  Country: CA (occurrence: CA)
  Receive Date: 20220225
  Receipt Date: 20240919
  Transmission Date: 20241016
  Serious: Yes (Other)
  Sender: CELLTRION
  Company Number: CA-CELLTRION INC.-2021CA018416

PATIENT

DRUGS (36)
  1. INFLECTRA [Suspect]
     Active Substance: INFLIXIMAB-DYYB
     Indication: Rheumatoid arthritis
     Dosage: 6 MG/KG, 0, 2, 6 THEN EVERY 8 WEEKS
     Route: 042
     Dates: start: 20211109
  2. INFLECTRA [Suspect]
     Active Substance: INFLIXIMAB-DYYB
     Dosage: 6 MG/KG, 0, 2, 6 THEN EVERY 8 WEEKS
     Route: 042
     Dates: start: 20211109, end: 20220820
  3. INFLECTRA [Suspect]
     Active Substance: INFLIXIMAB-DYYB
     Dosage: 6 MG/KG, 0, 2, 6 THEN EVERY 8 WEEKS
     Route: 042
     Dates: start: 20211122
  4. INFLECTRA [Suspect]
     Active Substance: INFLIXIMAB-DYYB
     Dosage: 6 MG/KG, 0, 2, 6 THEN EVERY 8 WEEKS
     Route: 042
     Dates: start: 20211220
  5. INFLECTRA [Suspect]
     Active Substance: INFLIXIMAB-DYYB
     Dosage: 6 MG/KG, 0, 2, 6 THEN EVERY 8 WEEKS
     Route: 042
     Dates: start: 20220214
  6. INFLECTRA [Suspect]
     Active Substance: INFLIXIMAB-DYYB
     Dosage: 6 MG/KG, 0, 2, 6 THEN EVERY 8 WEEKS
     Route: 042
     Dates: start: 20220606
  7. INFLECTRA [Suspect]
     Active Substance: INFLIXIMAB-DYYB
     Dosage: 6 MG/KG, AFTER 11 WEEKS AND 3 DAYS (PRESCRIBED EVERY 8 WEEKS)
     Route: 042
     Dates: start: 20220825
  8. INFLECTRA [Suspect]
     Active Substance: INFLIXIMAB-DYYB
     Dosage: 6 MG/KG, AFTER 7 WEEKS AND 6 DAYS (PRESCRIBED EVERY 6 WEEKS)
     Route: 042
     Dates: start: 20221019
  9. INFLECTRA [Suspect]
     Active Substance: INFLIXIMAB-DYYB
     Dosage: 6 MG/KG, AFTER 7 WEEKS AND 6 DAYS (PRESCRIBED EVERY 6 WEEKS)
     Route: 042
     Dates: start: 20221019
  10. INFLECTRA [Suspect]
     Active Substance: INFLIXIMAB-DYYB
     Dosage: 6 MG/KG, AFTER 7 WEEKS AND 6 DAYS (PRESCRIBED EVERY 6 WEEKS)
     Route: 042
     Dates: start: 20221019
  11. INFLECTRA [Suspect]
     Active Substance: INFLIXIMAB-DYYB
     Dosage: 700 MG, AFTER 7 WEEKS AND 6 DAYS (PRESCRIBED EVERY 6 WEEKS)
     Route: 042
     Dates: start: 20221019
  12. INFLECTRA [Suspect]
     Active Substance: INFLIXIMAB-DYYB
     Dosage: 6 MG/KG, 0, 2, 6 THEN EVERY 8 WEEKS (700MG EVERY 6 WEEKS)
     Route: 042
     Dates: start: 20221130, end: 20230405
  13. INFLECTRA [Suspect]
     Active Substance: INFLIXIMAB-DYYB
     Dosage: 800 MG, EVERY 6 WEEKS
     Route: 042
     Dates: start: 20230517
  14. INFLECTRA [Suspect]
     Active Substance: INFLIXIMAB-DYYB
     Dosage: 800 MG, EVERY 6 WEEKS
     Route: 042
     Dates: start: 20230628
  15. INFLECTRA [Suspect]
     Active Substance: INFLIXIMAB-DYYB
     Dosage: 800 MG, EVERY 6 WEEKS
     Route: 042
     Dates: start: 20230809
  16. INFLECTRA [Suspect]
     Active Substance: INFLIXIMAB-DYYB
     Dosage: 1000 MG, AFTER 12 WEEKS (PRESCRIBED EVERY 6 WEEKS)
     Route: 042
     Dates: start: 20231101
  17. INFLECTRA [Suspect]
     Active Substance: INFLIXIMAB-DYYB
     Dosage: 1000 MG, EVERY 6 WEEKS
     Route: 042
     Dates: start: 20231213
  18. INFLECTRA [Suspect]
     Active Substance: INFLIXIMAB-DYYB
     Dosage: 1000 MG, AFTER 10 WEEKS AND 1 DAY (PRESCRIBED EVERY 6 WEEKS)
     Route: 042
     Dates: start: 20240222
  19. INFLECTRA [Suspect]
     Active Substance: INFLIXIMAB-DYYB
     Dosage: 1000 MG, Q 0,2,6 WEEKS THEN EVERY 6 WEEKS
     Route: 042
     Dates: start: 20240509
  20. INFLECTRA [Suspect]
     Active Substance: INFLIXIMAB-DYYB
     Dosage: 1000 MG, Q 0,2,6 WEEKS THEN EVERY 6 WEEKS
     Route: 042
     Dates: start: 20240621
  21. INFLECTRA [Suspect]
     Active Substance: INFLIXIMAB-DYYB
     Dosage: 1000 MG, Q0,2,6 WEEKS THEN EVERY 6 WEEKS.
     Route: 042
     Dates: start: 20240801
  22. ALENDRONATE [Concomitant]
     Active Substance: ALENDRONATE SODIUM
     Dosage: UNK
  23. BEPREVE [Concomitant]
     Active Substance: BEPOTASTINE BESILATE
     Dosage: UNK
  24. CALCIUM [Concomitant]
     Active Substance: CALCIUM
     Dosage: UNK
  25. CYMBALTA [Concomitant]
     Active Substance: DULOXETINE HYDROCHLORIDE
     Dosage: UNK
  26. ELIQUIS [Concomitant]
     Active Substance: APIXABAN
     Dosage: UNK
  27. ERELZI [Concomitant]
     Active Substance: ETANERCEPT-SZZS
     Dosage: UNK
  28. EPIPEN [Concomitant]
     Active Substance: EPINEPHRINE
     Dosage: UNK
  29. FOLIC ACID [Concomitant]
     Active Substance: FOLIC ACID
     Dosage: 1 DF, DOSAGE INFO NOT AVAILABLE
     Route: 065
  30. HYDROXYCHLOROQUINE [Concomitant]
     Active Substance: HYDROXYCHLOROQUINE
     Dosage: 400 MG, 1X/DAY
     Route: 065
  31. METHOTREXATE [Concomitant]
     Active Substance: METHOTREXATE
     Dosage: 15 MG, WEEKLY
     Route: 065
  32. MIRENA [Concomitant]
     Active Substance: LEVONORGESTREL
     Dosage: UNK
  33. PLAQUENIL [Concomitant]
     Active Substance: HYDROXYCHLOROQUINE SULFATE
     Dosage: UNK
  34. SYNTHROID [Concomitant]
     Active Substance: LEVOTHYROXINE SODIUM
     Dosage: UNK
  35. TYLENOL [Concomitant]
     Active Substance: ACETAMINOPHEN
     Indication: Rheumatoid arthritis
     Dosage: UNK
  36. CHOLECALCIFEROL [Concomitant]
     Active Substance: CHOLECALCIFEROL
     Dosage: UNK

REACTIONS (48)
  - Nephrolithiasis [Not Recovered/Not Resolved]
  - Ureteric obstruction [Unknown]
  - Kidney infection [Not Recovered/Not Resolved]
  - Urine analysis abnormal [Unknown]
  - Knee arthroplasty [Unknown]
  - Skin laceration [Unknown]
  - Wound infection [Unknown]
  - Cystitis [Not Recovered/Not Resolved]
  - Pyrexia [Recovered/Resolved]
  - Pyrexia [Recovered/Resolved]
  - Urinary tract infection bacterial [Recovered/Resolved]
  - Abdominal discomfort [Unknown]
  - Drug level decreased [Not Recovered/Not Resolved]
  - Speech disorder [Not Recovered/Not Resolved]
  - Malaise [Recovered/Resolved]
  - Malaise [Not Recovered/Not Resolved]
  - Joint swelling [Not Recovered/Not Resolved]
  - Stomatitis [Not Recovered/Not Resolved]
  - Skin lesion [Not Recovered/Not Resolved]
  - Blister [Not Recovered/Not Resolved]
  - Asthenia [Not Recovered/Not Resolved]
  - Discomfort [Not Recovered/Not Resolved]
  - Vomiting [Not Recovered/Not Resolved]
  - Feeling abnormal [Not Recovered/Not Resolved]
  - Anxiety [Unknown]
  - Micturition urgency [Unknown]
  - Flank pain [Not Recovered/Not Resolved]
  - Uterine leiomyoma [Not Recovered/Not Resolved]
  - Fatigue [Unknown]
  - Back pain [Not Recovered/Not Resolved]
  - Abdominal pain lower [Unknown]
  - Nausea [Recovered/Resolved]
  - Pain [Not Recovered/Not Resolved]
  - Arthralgia [Not Recovered/Not Resolved]
  - Headache [Unknown]
  - Oropharyngeal pain [Not Recovered/Not Resolved]
  - Cough [Not Recovered/Not Resolved]
  - Pharyngitis streptococcal [Recovered/Resolved]
  - Nausea [Unknown]
  - Pain [Not Recovered/Not Resolved]
  - Pyrexia [Recovered/Resolved]
  - Condition aggravated [Recovered/Resolved]
  - Tonsillitis [Recovered/Resolved]
  - Laryngitis [Recovered/Resolved]
  - Pharyngeal swelling [Recovered/Resolved]
  - Infection [Recovered/Resolved]
  - Off label use [Unknown]
  - Off label use [Unknown]

NARRATIVE: CASE EVENT DATE: 20211101
